FAERS Safety Report 17041552 (Version 1)
Quarter: 2019Q4

REPORT INFORMATION
  Report Type: Spontaneous
  Country: GB (occurrence: GB)
  Receive Date: 20191118
  Receipt Date: 20191118
  Transmission Date: 20200122
  Serious: Yes (Other)
  Sender: FDA-Public Use
  Company Number: GB-TEVA-2019-GB-1138006

PATIENT
  Age: 29 Year
  Sex: Female
  Weight: 46.6 kg

DRUGS (7)
  1. FERROUS FUMARATE [Concomitant]
     Active Substance: FERROUS FUMARATE
  2. IMIPRAMINE HYDROCHLORIDE. [Concomitant]
     Active Substance: IMIPRAMINE HYDROCHLORIDE
  3. CEFALEXIN [Concomitant]
     Active Substance: CEPHALEXIN
  4. TOLTERODINE [Concomitant]
     Active Substance: TOLTERODINE
  5. DESMOTABS [Concomitant]
     Active Substance: DESMOPRESSIN
  6. CINNARIZINE [Concomitant]
     Active Substance: CINNARIZINE
  7. CABERGOLINE. [Suspect]
     Active Substance: CABERGOLINE
     Indication: GALACTORRHOEA
     Dosage: 0.5 MILLIGRAM
     Route: 048
     Dates: start: 20170831, end: 20170906

REACTIONS (1)
  - Lip swelling [Recovered/Resolved]

NARRATIVE: CASE EVENT DATE: 20170831
